FAERS Safety Report 24930113 (Version 3)
Quarter: 2025Q3

REPORT INFORMATION
  Report Type: Report from Study
  Country: US (occurrence: US)
  Receive Date: 20250205
  Receipt Date: 20250919
  Transmission Date: 20251021
  Serious: Yes (Other)
  Sender: UCB
  Company Number: US-UCBSA-2025006451

PATIENT
  Age: 23 Year
  Sex: Male
  Weight: 64.853 kg

DRUGS (1)
  1. FINTEPLA [Suspect]
     Active Substance: FENFLURAMINE
     Indication: Lennox-Gastaut syndrome
     Route: 048
     Dates: start: 20240227

REACTIONS (2)
  - Tricuspid valve incompetence [Unknown]
  - Mitral valve thickening [Unknown]

NARRATIVE: CASE EVENT DATE: 20241025
